FAERS Safety Report 19094420 (Version 1)
Quarter: 2021Q2

REPORT INFORMATION
  Report Type: Spontaneous
  Country: US (occurrence: US)
  Receive Date: 20210406
  Receipt Date: 20210406
  Transmission Date: 20210717
  Serious: No
  Sender: FDA-Public Use
  Company Number: US-ELI_LILLY_AND_COMPANY-US202103013591

PATIENT
  Sex: Male

DRUGS (12)
  1. METOPROLOL XL [Concomitant]
     Active Substance: METOPROLOL SUCCINATE
     Indication: PRODUCT USED FOR UNKNOWN INDICATION
  2. ASPIRIN [ACETYLSALICYLIC ACID] [Concomitant]
     Active Substance: ASPIRIN
     Indication: PRODUCT USED FOR UNKNOWN INDICATION
     Dosage: 325 MG, UNKNOWN
  3. POTASSIUM CHLORIDE. [Concomitant]
     Active Substance: POTASSIUM CHLORIDE
     Indication: PRODUCT USED FOR UNKNOWN INDICATION
     Dosage: 10 MEQ, UNKNOWN
  4. AMLODIPINE [Concomitant]
     Active Substance: AMLODIPINE BESYLATE
     Indication: PRODUCT USED FOR UNKNOWN INDICATION
     Dosage: 5 MG, UNKNOWN
  5. FISH OIL [Concomitant]
     Active Substance: FISH OIL
     Indication: PRODUCT USED FOR UNKNOWN INDICATION
  6. VITAMIN D3 [Concomitant]
     Active Substance: CHOLECALCIFEROL
  7. VITAMINS D3 [Concomitant]
     Indication: PRODUCT USED FOR UNKNOWN INDICATION
  8. RANITIDINE. [Concomitant]
     Active Substance: RANITIDINE
     Indication: PRODUCT USED FOR UNKNOWN INDICATION
  9. HUMALOG [Suspect]
     Active Substance: INSULIN LISPRO
     Indication: PRODUCT USED FOR UNKNOWN INDICATION
     Dosage: 10 U, DAILY (BEFORE BREAKFAST AND DINNER)
     Route: 058
  10. VITAMIN C [Concomitant]
     Active Substance: ASCORBIC ACID
     Indication: PRODUCT USED FOR UNKNOWN INDICATION
  11. ZOCOR [Concomitant]
     Active Substance: SIMVASTATIN
     Indication: PRODUCT USED FOR UNKNOWN INDICATION
     Dosage: 20 MG, UNKNOWN
  12. LEVEMIR [Concomitant]
     Active Substance: INSULIN DETEMIR
     Indication: DIABETES MELLITUS
     Dosage: 38 U, UNKNOWN

REACTIONS (9)
  - Abdominal distension [Unknown]
  - Pain [Recovering/Resolving]
  - Oedema peripheral [Recovering/Resolving]
  - Weight increased [Unknown]
  - Swelling face [Recovering/Resolving]
  - Somnolence [Unknown]
  - Cardiac disorder [Unknown]
  - Pruritus [Unknown]
  - Peripheral swelling [Recovering/Resolving]
